FAERS Safety Report 14392499 (Version 3)
Quarter: 2019Q2

REPORT INFORMATION
  Report Type: Spontaneous
  Country: US (occurrence: US)
  Receive Date: 20180116
  Receipt Date: 20190402
  Transmission Date: 20190711
  Serious: Yes (Other)
  Sender: FDA-Public Use
  Company Number: US-PFIZER INC-2017551146

PATIENT
  Age: 72 Year
  Sex: Female

DRUGS (2)
  1. IBRANCE [Suspect]
     Active Substance: PALBOCICLIB
     Dosage: 75 MG, CYCLIC, FOR 21 DAYS THEN 7 DAYS OFF
     Route: 048
     Dates: start: 201706
  2. IBRANCE [Suspect]
     Active Substance: PALBOCICLIB
     Indication: BREAST CANCER METASTATIC
     Dosage: 75 MG, CYCLIC, FOR 21 DAYS THEN 7 DAYS OFF
     Route: 048
     Dates: start: 201706

REACTIONS (3)
  - Lower respiratory tract infection [Recovering/Resolving]
  - Accident [Unknown]
  - Memory impairment [Unknown]

NARRATIVE: CASE EVENT DATE: 201801
